FAERS Safety Report 18695634 (Version 1)
Quarter: 2021Q1

REPORT INFORMATION
  Report Type: Other
  Country: GB (occurrence: GB)
  Receive Date: 20210104
  Receipt Date: 20210104
  Transmission Date: 20210419
  Serious: No
  Sender: FDA-Public Use
  Company Number: GB-LUPIN PHARMACEUTICALS INC.-2020-09064

PATIENT
  Age: 29 Year
  Sex: Female
  Weight: 58 kg

DRUGS (1)
  1. LEVONORGESTREL. [Suspect]
     Active Substance: LEVONORGESTREL
     Indication: CONTRACEPTION
     Dosage: UNK
     Route: 065
     Dates: start: 20201011, end: 20201011

REACTIONS (3)
  - Insomnia [Recovered/Resolved]
  - Irritability [Recovered/Resolved]
  - Mood swings [Recovered/Resolved]

NARRATIVE: CASE EVENT DATE: 20201011
